FAERS Safety Report 7286327-7 (Version None)
Quarter: 2011Q1

REPORT INFORMATION
  Report Type: 
  Country: None (occurrence: None)
  Receive Date: 20110210
  Receipt Date: 20110207
  Transmission Date: 20110831
  Serious: Yes (Death, Hospitalization, Other)
  Sender: FDA-Public Use
  Company Number: PHHY2010US79367

PATIENT
  Sex: Male
  Weight: 68 kg

DRUGS (12)
  1. GLIPIZIDE [Concomitant]
     Dosage: 7.5 (5MG AFTER BREAKFAST+2.5 MGBERORE SUPPER) MG
     Route: 048
  2. GLEEVEC [Suspect]
     Indication: CHRONIC MYELOID LEUKAEMIA
     Dosage: 400 MG, DAILY
     Route: 048
     Dates: start: 20100204, end: 20101201
  3. HUMALOG [Concomitant]
  4. MULTI-VIT [Concomitant]
     Dosage: 1 U, QD
     Route: 048
  5. OMEPRAZOLE [Concomitant]
     Dosage: 40 MG, CPDR
     Route: 048
  6. LANTUS [Concomitant]
     Dosage: 10 U, IN THE MORNING
     Route: 058
  7. DILTIAZEM HYDROCHLORIDE [Concomitant]
     Dosage: 90 MG XR12H ONE CAP IN THE MORNING
     Route: 048
  8. ALBUTEROL [Concomitant]
     Dosage: 90 UG, 2 PUFFS EVERY 4 HRS
  9. LORAZEPAM [Concomitant]
     Indication: ANXIETY
     Dosage: 0.5 MG,1-2 TAB TWICE DAILY
     Route: 048
  10. DOXAZOSIN MESILATE [Concomitant]
     Dosage: 4 MG, QD
     Route: 048
  11. OXYCODONE HYDROCHLORIDE [Concomitant]
     Dosage: 5 MG, 1 TO 2 PILLS EVERY 4 TO 6 HRS
     Route: 048
  12. DUONEB [Concomitant]

REACTIONS (8)
  - DYSPNOEA [None]
  - RESPIRATORY DISORDER [None]
  - HAEMORRHAGE [None]
  - ACUTE RESPIRATORY FAILURE [None]
  - OXYGEN SATURATION DECREASED [None]
  - CHRONIC OBSTRUCTIVE PULMONARY DISEASE [None]
  - THROMBOCYTOPENIA [None]
  - PNEUMONIA [None]
